FAERS Safety Report 13502968 (Version 2)
Quarter: 2017Q2

REPORT INFORMATION
  Report Type: Spontaneous
  Country: JP (occurrence: JP)
  Receive Date: 20170502
  Receipt Date: 20170525
  Transmission Date: 20170830
  Serious: Yes (Death, Hospitalization)
  Sender: FDA-Public Use
  Company Number: JP-GUERBET-JP-20170076

PATIENT
  Age: 67 Year
  Sex: Male

DRUGS (2)
  1. EPIRUBICIN HYDROCHLORIDE. [Concomitant]
     Active Substance: EPIRUBICIN HYDROCHLORIDE
     Indication: TRANSCATHETER ARTERIAL CHEMOEMBOLISATION
     Route: 013
  2. LIPIODOL [Suspect]
     Active Substance: ETHIODIZED OIL
     Indication: TRANSCATHETER ARTERIAL CHEMOEMBOLISATION
     Route: 013

REACTIONS (4)
  - Septic shock [Not Recovered/Not Resolved]
  - Hepatic failure [Fatal]
  - Biloma [Not Recovered/Not Resolved]
  - Pyrexia [Not Recovered/Not Resolved]
